FAERS Safety Report 10512893 (Version 2)
Quarter: 2015Q1

REPORT INFORMATION
  Report Type: Spontaneous
  Country: JP (occurrence: JP)
  Receive Date: 20141013
  Receipt Date: 20150319
  Transmission Date: 20150720
  Serious: Yes (Death)
  Sender: FDA-Public Use
  Company Number: JP-AMGEN-JPNSP2014078455

PATIENT
  Age: 60 Year
  Sex: Male

DRUGS (3)
  1. CARBOPLATIN. [Suspect]
     Active Substance: CARBOPLATIN
     Indication: NEUTROPENIA
     Dosage: 500 MG, UNK
     Route: 065
  2. GRAN [Suspect]
     Active Substance: FILGRASTIM
     Indication: NEUTROPENIA
     Dosage: 75 MUG, UNK
     Route: 065
  3. PEMETREXED [Suspect]
     Active Substance: PEMETREXED
     Indication: NEUTROPENIA
     Dosage: 700 MG/M2 (450 MG/M2), UNK
     Route: 065

REACTIONS (3)
  - Malignant neoplasm progression [Fatal]
  - White blood cell count increased [Unknown]
  - Respiratory failure [Fatal]
